FAERS Safety Report 5985391-2 (Version None)
Quarter: 2008Q4

REPORT INFORMATION
  Report Type: 
  Country: None (occurrence: None)
  Receive Date: 20081208
  Receipt Date: 20080318
  Transmission Date: 20090506
  Serious: No
  Sender: FDA-Public Use
  Company Number: US-AMGEN-KDL270265

PATIENT
  Sex: Female

DRUGS (1)
  1. ENBREL [Suspect]
     Indication: PSORIASIS
     Route: 058
     Dates: start: 20080120

REACTIONS (4)
  - HYPOAESTHESIA [None]
  - JOINT SWELLING [None]
  - MUSCLE TIGHTNESS [None]
  - OEDEMA PERIPHERAL [None]
